APPROVED DRUG PRODUCT: BUDESONIDE
Active Ingredient: BUDESONIDE
Strength: 0.5MG/2ML
Dosage Form/Route: SUSPENSION;INHALATION
Application: A077519 | Product #002 | TE Code: AN
Applicant: TEVA PHARMACEUTICALS USA
Approved: Nov 18, 2008 | RLD: No | RS: No | Type: RX